FAERS Safety Report 9999453 (Version 5)
Quarter: 2014Q2

REPORT INFORMATION
  Report Type: Spontaneous
  Country: RU (occurrence: RU)
  Receive Date: 20140312
  Receipt Date: 20140404
  Transmission Date: 20141212
  Serious: Yes (Death, Hospitalization, Other)
  Sender: FDA-Public Use
  Company Number: RU-SA-2014SA030179

PATIENT
  Sex: Male
  Weight: 12.5 kg

DRUGS (28)
  1. MYOZYME [Suspect]
     Indication: GLYCOGEN STORAGE DISEASE TYPE II
     Route: 042
     Dates: start: 20110828, end: 20140213
  2. MYOZYME [Suspect]
     Indication: GLYCOGEN STORAGE DISEASE TYPE II
     Route: 042
     Dates: start: 20140310, end: 20140310
  3. BISOPROLOL [Concomitant]
     Indication: HYPERTROPHIC CARDIOMYOPATHY
     Route: 048
     Dates: start: 20111128
  4. BISOPROLOL [Concomitant]
     Indication: HYPERTROPHIC CARDIOMYOPATHY
     Dates: end: 20140303
  5. THROMBO ASS [Concomitant]
     Indication: HYPERTROPHIC CARDIOMYOPATHY
     Route: 048
     Dates: start: 20111128, end: 20140303
  6. URSOFALK [Concomitant]
     Indication: HYPERTROPHIC CARDIOMYOPATHY
     Route: 048
     Dates: start: 20111128
  7. URSOFALK [Concomitant]
     Indication: HYPERTROPHIC CARDIOMYOPATHY
     Dates: start: 20131211
  8. URSOFALK [Concomitant]
     Indication: HYPERTROPHIC CARDIOMYOPATHY
     Dates: start: 201312, end: 20140303
  9. TRENTAL [Concomitant]
     Route: 048
     Dates: start: 20111128
  10. TRENTAL [Concomitant]
     Dates: start: 20131211
  11. MONOPRIL [Concomitant]
     Dates: end: 2011
  12. ALL OTHER THERAPEUTIC PRODUCTS [Concomitant]
     Dates: end: 2011
  13. THIOCTACID [Concomitant]
  14. THIOCTACID [Concomitant]
     Dates: start: 20121015
  15. MILGAMMA [Concomitant]
     Dates: start: 20121015
  16. MAGE-3A1 PEPTIDE [Concomitant]
     Route: 042
     Dates: start: 20121015
  17. MEXIDOL [Concomitant]
     Dates: start: 20121015
  18. PANTOGAM [Concomitant]
     Dates: start: 20121015
  19. TRENTAL [Concomitant]
     Dates: start: 2012
  20. TRENTAL [Concomitant]
     Dates: start: 201312
  21. PREDUCTAL [Concomitant]
     Dates: start: 20111128, end: 20140303
  22. THROMBO ASS [Concomitant]
     Dates: start: 2012
  23. ALL OTHER THERAPEUTIC PRODUCTS [Concomitant]
     Route: 030
  24. MEXIDOL [Concomitant]
  25. BERODUAL [Concomitant]
     Route: 055
  26. BERODUAL [Concomitant]
     Dates: start: 20131211
  27. ALL OTHER THERAPEUTIC PRODUCTS [Concomitant]
     Dates: start: 20131213
  28. ACETYLCYSTEINE [Concomitant]
     Dates: start: 20131213

REACTIONS (13)
  - Death [Fatal]
  - Coma [Not Recovered/Not Resolved]
  - Pneumonia viral [Not Recovered/Not Resolved]
  - Pyrexia [Not Recovered/Not Resolved]
  - Pulmonary oedema [Not Recovered/Not Resolved]
  - Arthropathy [Unknown]
  - Hyperthermia [Unknown]
  - Wolff-Parkinson-White syndrome [Unknown]
  - Bronchitis [Unknown]
  - Pericarditis [Unknown]
  - Sinus tachycardia [Unknown]
  - Cardiopulmonary failure [Not Recovered/Not Resolved]
  - Pulpitis dental [Unknown]
